FAERS Safety Report 18617372 (Version 1)
Quarter: 2020Q4

REPORT INFORMATION
  Report Type: Spontaneous
  Country: US (occurrence: US)
  Receive Date: 20201215
  Receipt Date: 20201215
  Transmission Date: 20210114
  Serious: No
  Sender: FDA-Public Use
  Company Number: US-BAYER-2020-273236

PATIENT

DRUGS (1)
  1. MIRALAX [Suspect]
     Active Substance: POLYETHYLENE GLYCOL 3350
     Dosage: 1 CAP FULL IN 32 OZ OF GATORADE
     Dates: start: 20201209, end: 20201209

REACTIONS (2)
  - Wrong technique in product usage process [Unknown]
  - Pollakiuria [Unknown]

NARRATIVE: CASE EVENT DATE: 20201209
